FAERS Safety Report 20502727 (Version 2)
Quarter: 2022Q1

REPORT INFORMATION
  Report Type: Report from Study
  Country: EG (occurrence: EG)
  Receive Date: 20220222
  Receipt Date: 20220225
  Transmission Date: 20220424
  Serious: Yes (Other)
  Sender: FDA-Public Use
  Company Number: EG-NOVARTISPH-NVSC2022EG026840

PATIENT
  Age: 57 Year
  Sex: Female

DRUGS (12)
  1. KISQALI [Suspect]
     Active Substance: RIBOCICLIB
     Indication: Breast cancer metastatic
     Dosage: 3 DOSAGE FORM, QD (3 TABLETS PER DAY FOR 3 WEEKS THEN ONE WEEK OFF)
     Route: 065
     Dates: start: 20211225, end: 202201
  2. KISQALI [Suspect]
     Active Substance: RIBOCICLIB
     Dosage: 200 MG (2 TABLETS PER DAY FOR 3 WEEKS THEN 1 WEEK OFF)
     Route: 065
     Dates: start: 20220123
  3. ARIMIDEX [Concomitant]
     Active Substance: ANASTROZOLE
     Indication: Breast cancer metastatic
     Dosage: UNK
     Route: 065
     Dates: start: 202112
  4. EPIDRON [Concomitant]
     Indication: Analgesic therapy
     Dosage: AFTER 2 WEEKS FROM STARTING KISQALI ( EXACT START DATE), 1 INJECTION ACCOMPANIED WITH IMMUNOGEN AMPO
     Route: 065
  5. EXFORGE HCT [Concomitant]
     Active Substance: AMLODIPINE BESYLATE\HYDROCHLOROTHIAZIDE\VALSARTAN
     Indication: Hypertension
     Dosage: UNK, ONE TABLET IN THE MORNING
     Route: 065
     Dates: start: 20210930
  6. BETACOR [Concomitant]
     Indication: Hypertension
     Dosage: STRENGTH: 80, ONE TABLET IN THE MORING AND ONE TABLET AT NIGHT
     Route: 065
     Dates: start: 20210930
  7. CONCOR 5 PLUS [Concomitant]
     Indication: Hypertension
     Dosage: IN 2003, ONE TABLET IN THE MORNING
     Route: 065
  8. ISOPTIN [Concomitant]
     Active Substance: VERAPAMIL HYDROCHLORIDE
     Indication: Hypertension
     Dosage: IN 2003, ONE TABLET AT NIGHT
     Route: 065
  9. X TENSION [Concomitant]
     Indication: Hypertension
     Dosage: STRENGTH: 150 (IN 2003), ONE TABLET IN THE MORNING
     Route: 065
  10. ERASTAPEX [Concomitant]
     Indication: Hypertension
     Dosage: IN 2003, ONE TABLET PER DAY
     Route: 065
  11. DILATROL [Concomitant]
     Indication: Hypertension
     Dosage: IN 2003, ONE TABLET DAILY
     Route: 065
  12. HYZAAR [Concomitant]
     Active Substance: HYDROCHLOROTHIAZIDE\LOSARTAN POTASSIUM
     Indication: Hypertension
     Dosage: IN 2003, ONE TABLET DAILY
     Route: 065

REACTIONS (10)
  - White blood cell count decreased [Recovering/Resolving]
  - Decreased immune responsiveness [Recovered/Resolved]
  - Calcium ionised increased [Unknown]
  - Nasopharyngitis [Recovered/Resolved]
  - Fatigue [Recovered/Resolved]
  - Dizziness [Unknown]
  - Pain [Unknown]
  - Diarrhoea [Recovered/Resolved]
  - Alopecia [Not Recovered/Not Resolved]
  - Inappropriate schedule of product administration [Not Recovered/Not Resolved]

NARRATIVE: CASE EVENT DATE: 20211225
